FAERS Safety Report 20375647 (Version 1)
Quarter: 2022Q1

REPORT INFORMATION
  Report Type: Spontaneous
  Country: US (occurrence: US)
  Receive Date: 20220125
  Receipt Date: 20220125
  Transmission Date: 20220424
  Serious: Yes (Hospitalization)
  Sender: FDA-Public Use
  Company Number: US-PARI RESPIRATORY EQUIPMENT, INC.-2022PAR00004

PATIENT
  Age: 37 Year
  Sex: Female
  Weight: 60.272 kg

DRUGS (17)
  1. KITABIS PAK [Suspect]
     Active Substance: TOBRAMYCIN
     Indication: Cystic fibrosis
     Dosage: 300 MG BY NEBULIZER, EVERY 12 HOURS FOR 28 DAYS ON AND 28 DAYS OFF
  2. KITABIS PAK [Suspect]
     Active Substance: TOBRAMYCIN
     Indication: Lung disorder
  3. CAYSTON [Concomitant]
     Active Substance: AZTREONAM
  4. FASENRA [Concomitant]
     Active Substance: BENRALIZUMAB
  5. PULMOZYME [Concomitant]
     Active Substance: DORNASE ALFA
  6. SODIUM CHLORIDE [Concomitant]
     Active Substance: SODIUM CHLORIDE
  7. TRAZODONE HCL [Concomitant]
     Active Substance: TRAZODONE HYDROCHLORIDE
  8. MVW COMPLETE FORMULATION PEDIATRIC [Concomitant]
  9. PRISTIQ EXTENDED-RELEASE [Concomitant]
     Active Substance: DESVENLAFAXINE SUCCINATE
  10. CREON [Concomitant]
     Active Substance: PANCRELIPASE AMYLASE\PANCRELIPASE LIPASE\PANCRELIPASE PROTEASE
  11. ZYRTEC [Concomitant]
     Active Substance: CETIRIZINE HYDROCHLORIDE
  12. TOBI NEB [Concomitant]
  13. SEREVENT DISKUS [Concomitant]
     Active Substance: SALMETEROL XINAFOATE
  14. ALBUTEROL SULFATE [Concomitant]
     Active Substance: ALBUTEROL SULFATE
  15. AZITHROMYCIN [Concomitant]
     Active Substance: AZITHROMYCIN
  16. PULMOZYME [Concomitant]
     Active Substance: DORNASE ALFA
  17. TRIKAFTA [Concomitant]
     Active Substance: ELEXACAFTOR\IVACAFTOR\TEZACAFTOR

REACTIONS (2)
  - Hospitalisation [Recovered/Resolved]
  - Off label use [Unknown]

NARRATIVE: CASE EVENT DATE: 20211227
